FAERS Safety Report 9735352 (Version 1)
Quarter: 2013Q4

REPORT INFORMATION
  Report Type: Spontaneous
  Country: US (occurrence: None)
  Receive Date: 20131205
  Receipt Date: 20131205
  Transmission Date: 20140711
  Serious: Yes (Other)
  Sender: FDA-Public Use
  Company Number: None

PATIENT
  Age: 70 Year
  Sex: Female
  Weight: 56.7 kg

DRUGS (6)
  1. RANIBIZUMAB [Suspect]
     Indication: RETINAL VEIN OCCLUSION
     Dates: start: 20121206
  2. TIMONAL .05% TWICE DAILY [Concomitant]
     Indication: GLAUCOMA
  3. TRAVATAN [Concomitant]
  4. MONTELUKAST [Concomitant]
  5. METHOCARBAMOL [Concomitant]
  6. LOW DOSE ASPIRIN [Concomitant]

REACTIONS (1)
  - Glaucoma [None]
